FAERS Safety Report 5624152-0 (Version None)
Quarter: 2008Q1

REPORT INFORMATION
  Report Type: 
  Country: None (occurrence: None)
  Receive Date: 20080213
  Receipt Date: 20080207
  Transmission Date: 20080703
  Serious: Yes (Life-Threatening, Hospitalization, Other)
  Sender: FDA-Public Use
  Company Number: US-BAYER-US-2006-015330

PATIENT
  Age: 45 Year
  Sex: Female
  Weight: 72 kg

DRUGS (11)
  1. CAMPATH [Suspect]
     Indication: LIVER TRANSPLANT
     Dosage: UNIT DOSE: 30 MG
     Route: 042
     Dates: start: 20060511, end: 20060511
  2. TACROLIMUS [Suspect]
     Indication: IMMUNOSUPPRESSANT DRUG THERAPY
     Dosage: UNIT DOSE: 2 MG
     Route: 042
     Dates: start: 20060514, end: 20060521
  3. METHYLPREDNISOLONE [Concomitant]
     Indication: PREMEDICATION
     Dosage: UNIT DOSE: 250 MG
     Route: 042
     Dates: start: 20060511, end: 20060511
  4. ACETAMINOPHEN [Concomitant]
     Indication: PREMEDICATION
     Dates: start: 20060511, end: 20060511
  5. ACETAMINOPHEN [Concomitant]
     Dates: start: 20060515, end: 20060520
  6. BENADRYL [Concomitant]
     Indication: PREMEDICATION
     Dates: start: 20060511, end: 20060511
  7. MIRTAZAPINE [Concomitant]
     Dates: start: 20060511, end: 20060525
  8. MULTI-VITAMIN [Concomitant]
     Dates: start: 20060511, end: 20060520
  9. TRIMETHOPRIM + SULFAMETHOXAZOLE [Concomitant]
     Dates: start: 20060512
  10. URSODIOL [Concomitant]
     Dates: start: 20060511, end: 20060520
  11. VALGANCICLOVIR HCL [Concomitant]
     Dates: start: 20060512, end: 20060520

REACTIONS (4)
  - ANASTOMOTIC HAEMORRHAGE [None]
  - HEPATIC FAILURE [None]
  - PLATELET COUNT DECREASED [None]
  - TRANSPLANT FAILURE [None]
